FAERS Safety Report 8771917 (Version 1)
Quarter: 2012Q4

REPORT INFORMATION
  Report Type: 
  Country: US (occurrence: US)
  Receive Date: 20120906
  Receipt Date: 20120906
  Transmission Date: 20130627
  Serious: No
  Sender: FDA-Public Use
  Company Number: US-PFIZER INC-2012219077

PATIENT
  Age: 59 Year
  Sex: Male
  Weight: 103 kg

DRUGS (8)
  1. LYRICA [Suspect]
     Indication: NEURALGIA
     Dosage: 75 mg, 2x/day
     Route: 048
     Dates: start: 201205
  2. LYRICA [Suspect]
     Indication: AREFLEXIA
  3. LYRICA [Suspect]
     Indication: HYPOAESTHESIA
  4. LOVASTATIN [Concomitant]
     Dosage: 40 mg, daily
  5. AMLODIPINE [Concomitant]
     Dosage: 2.5 mg, daily
  6. LISINOPRIL [Concomitant]
     Dosage: 20 mg, daily
  7. HYDROCHLOROTHIAZIDE [Concomitant]
     Dosage: 25 mg, daily
  8. ACETYLSALICYLIC ACID [Concomitant]
     Dosage: 81 mg, daily

REACTIONS (1)
  - Drug ineffective [Unknown]
